FAERS Safety Report 10236402 (Version 1)
Quarter: 2014Q2

REPORT INFORMATION
  Report Type: Spontaneous
  Country: US (occurrence: US)
  Receive Date: 20140613
  Receipt Date: 20140613
  Transmission Date: 20141212
  Serious: No
  Sender: FDA-Public Use
  Company Number: US-ASTRAZENECA-2014SE38906

PATIENT
  Age: 76 Year
  Sex: Female
  Weight: 62.1 kg

DRUGS (3)
  1. SYMBICORT [Suspect]
     Indication: EMPHYSEMA
     Dosage: 160/4.5 MCG, 1 PUFF, TWO TIMES A DAY
     Route: 055
     Dates: start: 20140527
  2. SYMBICORT [Suspect]
     Indication: EMPHYSEMA
     Dosage: ONE PUFF TWICE A DAY
     Route: 055
     Dates: start: 20140529
  3. SYMBICORT [Suspect]
     Indication: EMPHYSEMA
     Dosage: ONE PUFF IN THE AM AND NONE IN THE EVENING
     Route: 055
     Dates: start: 20140602

REACTIONS (6)
  - Feeling abnormal [Unknown]
  - Paraesthesia [Unknown]
  - Vascular pain [Unknown]
  - Dyspnoea [Unknown]
  - Drug dose omission [Unknown]
  - Intentional product misuse [Unknown]
